FAERS Safety Report 4322869-1 (Version None)
Quarter: 2004Q1

REPORT INFORMATION
  Report Type: 
  Country: None (occurrence: None)
  Receive Date: 20040322
  Receipt Date: 20040303
  Transmission Date: 20041129
  Serious: Yes (Life-Threatening)
  Sender: FDA-Public Use
  Company Number: RGD: 54756/ 414

PATIENT
  Age: 23 Year

DRUGS (1)
  1. LEVONELLE-2 (LEVONORGESTREL 0.75 MG) COATED TABLET [Suspect]
     Indication: POST COITAL CONTRACEPTION
     Dosage: 2 DOSES
     Route: 048

REACTIONS (2)
  - ECTOPIC PREGNANCY [None]
  - PREGNANCY ON ORAL CONTRACEPTIVE [None]
